FAERS Safety Report 15255190 (Version 1)
Quarter: 2018Q3

REPORT INFORMATION
  Report Type: Spontaneous
  Country: US (occurrence: US)
  Receive Date: 20180808
  Receipt Date: 20180808
  Transmission Date: 20181010
  Serious: No
  Sender: FDA-Public Use
  Company Number: US-MYLANLABS-2018M1057233

PATIENT
  Sex: Female
  Weight: 68 kg

DRUGS (2)
  1. LIDOCAINE PATCH [Suspect]
     Active Substance: LIDOCAINE
     Indication: CANCER PAIN
     Dosage: 1 DF, QD
     Route: 003
     Dates: start: 201807
  2. LETROZOL [Concomitant]
     Active Substance: LETROZOLE
     Indication: NEOPLASM MALIGNANT
     Dosage: 2.5 MG, QD

REACTIONS (2)
  - Drug ineffective for unapproved indication [Recovered/Resolved]
  - Drug dose omission [Recovered/Resolved]
